FAERS Safety Report 6296477-X (Version None)
Quarter: 2009Q3

REPORT INFORMATION
  Report Type: 
  Country: None (occurrence: None)
  Receive Date: 20090804
  Receipt Date: 20090728
  Transmission Date: 20100115
  Serious: Yes (Other)
  Sender: FDA-Public Use
  Company Number: A0799105A

PATIENT
  Age: 74 Year
  Sex: Female

DRUGS (18)
  1. VALTREX [Suspect]
     Dosage: 1000MG THREE TIMES PER DAY
     Route: 048
     Dates: start: 20090716, end: 20090723
  2. DOMPERIDONE [Concomitant]
  3. PEPCID [Concomitant]
  4. NEXIUM [Concomitant]
  5. LIPITOR [Concomitant]
  6. ALTACE [Concomitant]
  7. NORVASC [Concomitant]
  8. ASPIRIN [Concomitant]
  9. AVALIDE [Concomitant]
  10. LASIX [Concomitant]
  11. POTASSIUM CHLORIDE [Concomitant]
  12. PLAVIX [Concomitant]
  13. ALEVE [Concomitant]
  14. ALAVERT [Concomitant]
  15. LORAZEPAM [Concomitant]
  16. CALCIUM [Concomitant]
  17. MULTI-VITAMIN [Concomitant]
  18. SYNTHROID [Concomitant]

REACTIONS (3)
  - PRURITUS [None]
  - RASH [None]
  - SUICIDAL IDEATION [None]
